FAERS Safety Report 4925754-7 (Version None)
Quarter: 2006Q1

REPORT INFORMATION
  Report Type: 
  Country: None (occurrence: None)
  Receive Date: 20060228
  Receipt Date: 20050315
  Transmission Date: 20060701
  Serious: No
  Sender: FDA-Public Use
  Company Number: US-GLAXOSMITHKLINE-A0549857A

PATIENT
  Age: 52 Year
  Sex: Male

DRUGS (8)
  1. LAMICTAL [Suspect]
     Indication: DRUG USE FOR UNKNOWN INDICATION
     Route: 048
  2. BUSPAR [Concomitant]
     Route: 048
  3. DARVON [Concomitant]
     Route: 048
  4. MOBIC [Concomitant]
     Route: 048
  5. ULTRAM [Concomitant]
     Route: 048
  6. CONCERTA [Concomitant]
     Route: 048
  7. LITHOBID [Concomitant]
     Route: 048
  8. LEVSINEX [Concomitant]
     Route: 048

REACTIONS (1)
  - GINGIVAL HYPERPLASIA [None]
